FAERS Safety Report 11626476 (Version 1)
Quarter: 2015Q4

REPORT INFORMATION
  Report Type: Spontaneous
  Country: US (occurrence: US)
  Receive Date: 20151013
  Receipt Date: 20151013
  Transmission Date: 20160304
  Serious: No
  Sender: FDA-Public Use
  Company Number: US-ROCHE-1588358

PATIENT
  Age: 55 Year
  Sex: Female
  Weight: 85.35 kg

DRUGS (4)
  1. ZELBORAF [Suspect]
     Active Substance: VEMURAFENIB
     Route: 065
     Dates: start: 20150504, end: 20150507
  2. ZELBORAF [Suspect]
     Active Substance: VEMURAFENIB
     Indication: METASTATIC MALIGNANT MELANOMA
     Dosage: 3 TWICE DAILY
     Route: 048
     Dates: start: 20150420
  3. ZELBORAF [Suspect]
     Active Substance: VEMURAFENIB
     Route: 048
     Dates: start: 20150427, end: 20150428
  4. ZELBORAF [Suspect]
     Active Substance: VEMURAFENIB
     Dosage: 1 TAB TWICE DAILY
     Route: 065

REACTIONS (2)
  - Headache [Recovered/Resolved]
  - Uveitis [Recovered/Resolved]

NARRATIVE: CASE EVENT DATE: 20150428
